FAERS Safety Report 20462122 (Version 3)
Quarter: 2022Q2

REPORT INFORMATION
  Report Type: Spontaneous
  Country: CO (occurrence: CO)
  Receive Date: 20220211
  Receipt Date: 20220415
  Transmission Date: 20220721
  Serious: Yes (Death, Other)
  Sender: FDA-Public Use
  Company Number: CO-BAYER-2022A021650

PATIENT
  Age: 16 Year
  Sex: Female

DRUGS (4)
  1. VITRAKVI [Suspect]
     Active Substance: LAROTRECTINIB
     Indication: Sarcoma
     Dosage: UNK
     Route: 048
     Dates: start: 20210204, end: 202109
  2. VITRAKVI [Suspect]
     Active Substance: LAROTRECTINIB
     Indication: Sarcoma
     Dosage: UNK
     Dates: end: 20211105
  3. VENETOCLAX [Concomitant]
     Active Substance: VENETOCLAX
     Dosage: UNK
     Dates: start: 202112
  4. AZACITIDINE [Concomitant]
     Active Substance: AZACITIDINE
     Dosage: UNK
     Dates: start: 202112

REACTIONS (4)
  - Acute myeloid leukaemia [Fatal]
  - Blood disorder [Fatal]
  - Ascites [None]
  - Pancytopenia [None]

NARRATIVE: CASE EVENT DATE: 20210701
